FAERS Safety Report 10373165 (Version 1)
Quarter: 2014Q3

REPORT INFORMATION
  Report Type: Spontaneous
  Country: US (occurrence: US)
  Receive Date: 20140808
  Receipt Date: 20140808
  Transmission Date: 20150326
  Serious: No
  Sender: FDA-Public Use
  Company Number: US-BRISTOL-MYERS SQUIBB COMPANY-20117370

PATIENT
  Age: 69 Year
  Sex: Male
  Weight: 102.04 kg

DRUGS (1)
  1. SPRYCEL [Suspect]
     Active Substance: DASATINIB
     Indication: CHRONIC MYELOID LEUKAEMIA
     Dates: start: 20131214

REACTIONS (3)
  - Abdominal discomfort [Unknown]
  - Rhinorrhoea [Unknown]
  - Headache [Unknown]
